FAERS Safety Report 4374731-6 (Version None)
Quarter: 2004Q2

REPORT INFORMATION
  Report Type: 
  Country: None (occurrence: None)
  Receive Date: 20040604
  Receipt Date: 20040521
  Transmission Date: 20050107
  Serious: Yes (Hospitalization)
  Sender: FDA-Public Use
  Company Number: 2004210872JP

PATIENT
  Age: 68 Year
  Sex: Male
  Weight: 60 kg

DRUGS (3)
  1. EPIRUBICIN [Suspect]
     Indication: BLADDER CANCER
     Dosage: 40 MG, CYCLIC, INTRAVESICULAR
     Route: 050
     Dates: start: 20020917, end: 20040421
  2. NAUZELIN (DOMPERIDONE) [Suspect]
  3. LIDOCAINE HYDROCHLORIDE [Suspect]
     Indication: ANAESTHESIA
     Dosage: 20 ML, CYCLIC, URETHRAL
     Route: 066
     Dates: start: 20030521, end: 20040421

REACTIONS (10)
  - BLOOD PRESSURE DECREASED [None]
  - FALL [None]
  - HYPERHIDROSIS [None]
  - HYPERSENSITIVITY [None]
  - HYPERTONIC BLADDER [None]
  - INJURY [None]
  - LOSS OF CONSCIOUSNESS [None]
  - PAIN [None]
  - RASH [None]
  - SHOCK [None]
